FAERS Safety Report 5799356-7 (Version None)
Quarter: 2008Q3

REPORT INFORMATION
  Report Type: 
  Country: None (occurrence: None)
  Receive Date: 20080702
  Receipt Date: 20080623
  Transmission Date: 20090109
  Serious: Yes (Other)
  Sender: FDA-Public Use
  Company Number: US-PFIZER INC-2008053265

PATIENT
  Sex: Female

DRUGS (10)
  1. LYRICA [Suspect]
     Indication: FIBROMYALGIA
  2. PREDNISONE 50MG TAB [Suspect]
     Indication: MULTIPLE SCLEROSIS
  3. COPAXONE [Concomitant]
  4. PROVIGIL [Concomitant]
  5. LEXAPRO [Concomitant]
  6. ALPRAZOLAM [Concomitant]
  7. AMLODIPINE/VALSARTAN [Concomitant]
  8. ANTIHYPERTENSIVES [Concomitant]
  9. FLONASE [Concomitant]
  10. NEXIUM [Concomitant]

REACTIONS (3)
  - FATIGUE [None]
  - HYPERTENSION [None]
  - WEIGHT INCREASED [None]
